FAERS Safety Report 17200838 (Version 1)
Quarter: 2019Q4

REPORT INFORMATION
  Report Type: Report from Study
  Country: DE (occurrence: DE)
  Receive Date: 20191226
  Receipt Date: 20191226
  Transmission Date: 20200122
  Serious: Yes (Hospitalization)
  Sender: FDA-Public Use
  Company Number: DE-GLAXOSMITHKLINE-DE2019EME233834

PATIENT

DRUGS (1)
  1. BELIMUMAB SUBCUTANEOUS [Suspect]
     Active Substance: BELIMUMAB
     Indication: SYSTEMIC LUPUS ERYTHEMATOSUS
     Dosage: UNK
     Dates: start: 20191212

REACTIONS (11)
  - Vomiting [Recovering/Resolving]
  - Nausea [Recovering/Resolving]
  - Malaise [Recovering/Resolving]
  - Asthenia [Not Recovered/Not Resolved]
  - Application site laceration [Recovering/Resolving]
  - Heart rate increased [Not Recovered/Not Resolved]
  - Injection site pain [Recovering/Resolving]
  - Feeling hot [Recovering/Resolving]
  - Palpitations [Recovering/Resolving]
  - Restlessness [Not Recovered/Not Resolved]
  - Product complaint [Unknown]
